FAERS Safety Report 9894104 (Version 1)
Quarter: 2014Q1

REPORT INFORMATION
  Report Type: Spontaneous
  Country: FR (occurrence: FR)
  Receive Date: 20140213
  Receipt Date: 20140213
  Transmission Date: 20141002
  Serious: Yes (Hospitalization, Other)
  Sender: FDA-Public Use
  Company Number: FR-PFIZER INC-2014035447

PATIENT
  Age: 24 Year
  Sex: Female

DRUGS (10)
  1. DALACINE [Suspect]
     Indication: CEREBRAL TOXOPLASMOSIS
     Dosage: 600 MG, 4X/DAY
     Route: 042
     Dates: start: 20080129, end: 20080216
  2. MALOCIDE [Suspect]
     Indication: CEREBRAL TOXOPLASMOSIS
     Dosage: 50 MG, 1X/DAY
     Route: 048
     Dates: start: 20080129, end: 20080311
  3. MALOCIDE [Suspect]
     Dosage: 25 MG, 1X/DAY
     Route: 048
  4. BACTRIM [Suspect]
     Indication: ANTIFUNGAL PROPHYLAXIS
     Dosage: 480 MG, 1X/DAY
     Route: 042
     Dates: start: 20080129, end: 20080216
  5. KALETRA [Concomitant]
     Dosage: UNK
  6. TRUVADA [Concomitant]
     Dosage: UNK
  7. TRIFLUCAN [Concomitant]
     Dosage: UNK
  8. DISULONE [Concomitant]
     Dosage: UNK
  9. DIFFU K [Concomitant]
     Dosage: UNK
  10. CALCIUM FOLINATE [Concomitant]
     Dosage: UNK

REACTIONS (3)
  - Coma [Unknown]
  - Pancytopenia [Recovered/Resolved]
  - Pyrexia [Unknown]
